FAERS Safety Report 8417797-6 (Version None)
Quarter: 2012Q2

REPORT INFORMATION
  Report Type: 
  Country: None (occurrence: None)
  Receive Date: 20120607
  Receipt Date: 20120601
  Transmission Date: 20120825
  Serious: Yes (Hospitalization)
  Sender: FDA-Public Use
  Company Number: US-BRISTOL-MYERS SQUIBB COMPANY-16464851

PATIENT
  Age: 70 Year
  Sex: Male
  Weight: 84 kg

DRUGS (13)
  1. AMLODIPINE [Concomitant]
  2. PACLITAXEL [Suspect]
     Indication: METASTATIC MALIGNANT MELANOMA
     Dosage: INTERRUPTED 25JAN2012,RESTARTED ON 15FEB2012;CYCLE 6
     Route: 042
  3. HYDROCHLOROTHIAZIDE [Concomitant]
  4. POTASSIUM CHLORIDE [Concomitant]
  5. MIRALAX [Concomitant]
  6. GLIPIZIDE [Concomitant]
  7. AXITINIB [Suspect]
     Indication: METASTATIC MALIGNANT MELANOMA
     Dosage: 2WKS ON,1WK OFF;INTER 02FEB12,RESTA15FEB12;CYCLE 6 05MAR-16MAR12,3MG TWICE DAILY 2 WKS ON 1 WK OFF
     Route: 048
     Dates: start: 20110926
  8. METOPROLOL TARTRATE [Concomitant]
  9. METFORMIN HCL [Concomitant]
  10. ACETYLSALICYLIC ACID SRT [Concomitant]
  11. CARBOPLATIN [Suspect]
     Indication: METASTATIC MALIGNANT MELANOMA
     Dosage: INTERRUPTED 25JAN2012,RESTARTED ON 15FEB2012;CYCLE 6
     Route: 042
  12. LISINOPRIL [Concomitant]
  13. NIASPAN [Concomitant]

REACTIONS (2)
  - ATAXIA [None]
  - DYSPNOEA [None]
